FAERS Safety Report 4279755-5 (Version None)
Quarter: 2004Q1

REPORT INFORMATION
  Report Type: 
  Country: None (occurrence: None)
  Receive Date: 20040123
  Receipt Date: 20040113
  Transmission Date: 20041129
  Serious: Yes (Other)
  Sender: FDA-Public Use
  Company Number: 2004002315

PATIENT
  Age: 24 Year
  Sex: Male

DRUGS (11)
  1. ZELDOX [Suspect]
     Indication: PSYCHOTIC DISORDER
  2. ZELDOX [Suspect]
     Indication: SCHIZOPHRENIA
  3. FLUNITRAZEPAM [Concomitant]
  4. MIRTAZAPINE [Concomitant]
  5. LEVOMEPROMAZINE [Concomitant]
  6. HYDROXYZINE [Concomitant]
  7. ZALEPLON [Concomitant]
  8. DIAZEPAM [Concomitant]
  9. NITRAZEPAM [Concomitant]
  10. RANITIDINE HYDROCHLORIDE [Concomitant]
  11. DICLOFENAC [Concomitant]

REACTIONS (5)
  - AGGRESSION [None]
  - DELUSION [None]
  - HALLUCINATION, AUDITORY [None]
  - MURDER [None]
  - SLEEP DISORDER [None]
